FAERS Safety Report 21585286 (Version 1)
Quarter: 2022Q4

REPORT INFORMATION
  Report Type: Spontaneous
  Country: FR (occurrence: FR)
  Receive Date: 20221111
  Receipt Date: 20221111
  Transmission Date: 20230112
  Serious: Yes (Hospitalization)
  Sender: FDA-Public Use
  Company Number: None

PATIENT
  Age: 73 Year
  Sex: Female
  Weight: 86.5 kg

DRUGS (10)
  1. CLARITHROMYCIN [Interacting]
     Active Substance: CLARITHROMYCIN
     Indication: Lung disorder
     Dosage: FREQUENCY TIME : 1 DAY, DURATION: 4 DAYS, UNIT DOSE: 1 DF
     Route: 065
     Dates: start: 20220930, end: 20221004
  2. THEOPHYLLINE [Interacting]
     Active Substance: THEOPHYLLINE
     Indication: Asthma
     Dosage: FREQUENCY TIME : 1 DAY, UNIT DOSE: 300 MG, THERAPY START DATE: ASKU
     Route: 065
     Dates: end: 202210
  3. FOLIC ACID [Concomitant]
     Active Substance: FOLIC ACID
     Indication: Product used for unknown indication
     Dosage: FREQUENCY TIME : 1 DAY, UNIT DOSE: 5 MG, THERAPY START DATE: ASKU
  4. LEVOTHYROXINE SODIUM [Concomitant]
     Active Substance: LEVOTHYROXINE SODIUM
     Indication: Product used for unknown indication
     Dosage: FREQUENCY TIME : 1 DAY, UNIT DOSE: 75 MG, THERAPY START DATE: ASKU
  5. KARDEGIC [Concomitant]
     Active Substance: ASPIRIN DL-LYSINE
     Indication: Product used for unknown indication
     Dosage: FORM STRENGTH : 75 MG, FREQUENCY TIME : 1 DAY, UNIT DOSE: 1 DF, THERAPY START DATE: ASKU , POWDER FO
  6. INSULIN GLARGINE [Concomitant]
     Active Substance: INSULIN GLARGINE
     Indication: Product used for unknown indication
     Dosage: ABASAGLAR 100 UNITS/ML, FREQUENCY TIME : 1 DAY, UNIT DOSE: 28 IU, THERAPY START DATE: ASKU
  7. FORMOTEROL DIHYDRATE FUMARATE [Concomitant]
     Indication: Product used for unknown indication
     Dosage: FREQUENCY TIME : 1 DAY, UNIT DOSE: 36 UG, THERAPY START DATE: ASKU
  8. LERCANIDIPINE HYDROCHLORIDE [Concomitant]
     Active Substance: LERCANIDIPINE HYDROCHLORIDE
     Indication: Product used for unknown indication
     Dosage: FREQUENCY TIME : 1 DAY, UNIT DOSE: 20 MG, THERAPY START DATE: ASKU
  9. LANSOPRAZOLE [Concomitant]
     Active Substance: LANSOPRAZOLE
     Indication: Product used for unknown indication
     Dosage: FREQUENCY TIME : 1 DAY, UNIT DOSE: 15 MG, THERAPY START DATE: ASKU
  10. PRAVASTATIN SODIUM [Concomitant]
     Active Substance: PRAVASTATIN SODIUM
     Indication: Product used for unknown indication
     Dosage: FREQUENCY TIME: 1 DAY, UNIT DOSE: 10 MG, THERAPY START DATE: ASKU

REACTIONS (3)
  - Drug interaction [Recovered/Resolved]
  - Drug interaction [Recovered/Resolved]
  - Epilepsy [Recovered/Resolved]

NARRATIVE: CASE EVENT DATE: 20221004
